FAERS Safety Report 8985642 (Version 3)
Quarter: 2013Q1

REPORT INFORMATION
  Report Type: Report from Study
  Country: US (occurrence: US)
  Receive Date: 20121226
  Receipt Date: 20130326
  Transmission Date: 20140127
  Serious: Yes (Other)
  Sender: FDA-Public Use
  Company Number: US-JNJFOC-20121206943

PATIENT
  Sex: Female
  Weight: 70.31 kg

DRUGS (8)
  1. REMICADE [Suspect]
     Indication: CROHN^S DISEASE
     Route: 042
  2. INTRAVENOUS CONTRAST DYE [Suspect]
     Indication: COMPUTERISED TOMOGRAM
     Route: 042
     Dates: start: 2012
  3. ATENOLOL [Concomitant]
     Indication: HYPERTENSION
     Route: 048
  4. CALCIUM WITH VITAMIN  D [Concomitant]
     Route: 065
  5. CALCIUM [Concomitant]
     Route: 065
  6. PROTONIX [Concomitant]
     Indication: GASTROOESOPHAGEAL REFLUX DISEASE
     Route: 048
  7. PROTONIX [Concomitant]
     Indication: DYSPEPSIA
     Route: 048
  8. VITAMIN D3 [Concomitant]
     Route: 065

REACTIONS (6)
  - Genitourinary tract infection [Unknown]
  - Clostridium test positive [Not Recovered/Not Resolved]
  - Chest pain [Unknown]
  - Hypertension [Not Recovered/Not Resolved]
  - Genitourinary tract infection [Recovered/Resolved]
  - Malaise [Not Recovered/Not Resolved]
